FAERS Safety Report 10656718 (Version 2)
Quarter: 2015Q1

REPORT INFORMATION
  Report Type: Spontaneous
  Country: RU (occurrence: RU)
  Receive Date: 20141217
  Receipt Date: 20150209
  Transmission Date: 20150720
  Serious: Yes (Hospitalization, Other)
  Sender: FDA-Public Use
  Company Number: RU-ROCHE-1508843

PATIENT
  Age: 10 Year
  Sex: Male

DRUGS (7)
  1. XOLAIR [Suspect]
     Active Substance: OMALIZUMAB
     Indication: ASTHMA
     Route: 065
  2. XOLAIR [Suspect]
     Active Substance: OMALIZUMAB
     Route: 065
  3. CEFTRIAXONE SODIUM. [Concomitant]
     Active Substance: CEFTRIAXONE SODIUM
  4. SUPRAX (RUSSIA) [Concomitant]
  5. XOLAIR [Suspect]
     Active Substance: OMALIZUMAB
     Route: 065
     Dates: start: 201411
  6. CYCLOFERON [Concomitant]
     Active Substance: MEGLUMINE
  7. AZITHROMYCIN [Concomitant]
     Active Substance: AZITHROMYCIN ANHYDROUS

REACTIONS (11)
  - Abdominal pain [Unknown]
  - Weight increased [Unknown]
  - Blood pressure ambulatory increased [Not Recovered/Not Resolved]
  - Headache [Unknown]
  - Varicella [Unknown]
  - Asthenia [Not Recovered/Not Resolved]
  - Heart rate abnormal [Unknown]
  - Pyrexia [Not Recovered/Not Resolved]
  - Vomiting [Unknown]
  - Nausea [Unknown]
  - Face oedema [Unknown]

NARRATIVE: CASE EVENT DATE: 20141111
